FAERS Safety Report 25039250 (Version 1)
Quarter: 2025Q1

REPORT INFORMATION
  Report Type: Spontaneous
  Country: MX (occurrence: MX)
  Receive Date: 20250305
  Receipt Date: 20250305
  Transmission Date: 20250409
  Serious: Yes (Hospitalization, Other)
  Sender: AMGEN
  Company Number: MX-AMGEN-MEXSP2025038464

PATIENT

DRUGS (7)
  1. FILGRASTIM [Suspect]
     Active Substance: FILGRASTIM
     Indication: Autologous haematopoietic stem cell transplant
     Route: 065
  2. CYCLOPHOSPHAMIDE [Concomitant]
     Active Substance: CYCLOPHOSPHAMIDE
  3. RITUXIMAB [Concomitant]
     Active Substance: RITUXIMAB
  4. ACYCLOVIR [Concomitant]
     Active Substance: ACYCLOVIR
  5. COTRIMOXAZOLE [Concomitant]
     Active Substance: SULFAMETHOXAZOLE\TRIMETHOPRIM
  6. ITRACONAZOLE [Concomitant]
     Active Substance: ITRACONAZOLE
  7. MESNA [Concomitant]
     Active Substance: MESNA

REACTIONS (5)
  - Pneumothorax [Recovering/Resolving]
  - Febrile neutropenia [Recovering/Resolving]
  - Myocarditis [Recovering/Resolving]
  - Multiple sclerosis relapse [Recovering/Resolving]
  - Hyponatraemia [Recovering/Resolving]
